FAERS Safety Report 6733608-9 (Version None)
Quarter: 2010Q2

REPORT INFORMATION
  Report Type: 
  Country: None (occurrence: None)
  Receive Date: 20100520
  Receipt Date: 20100511
  Transmission Date: 20101027
  Serious: Yes (Hospitalization, Other)
  Sender: FDA-Public Use
  Company Number: US-ASTRAZENECA-2010SE21399

PATIENT
  Age: 77 Year
  Sex: Female
  Weight: 52.2 kg

DRUGS (3)
  1. NEXIUM [Suspect]
     Indication: GASTROOESOPHAGEAL REFLUX DISEASE
     Route: 048
     Dates: start: 20010101, end: 20090101
  2. NEXIUM [Suspect]
     Route: 048
     Dates: start: 20090101
  3. RADIATION THERAPY [Concomitant]

REACTIONS (4)
  - BREAST CANCER [None]
  - GRANULOMA [None]
  - HIP FRACTURE [None]
  - WEIGHT DECREASED [None]
